FAERS Safety Report 13255674 (Version 2)
Quarter: 2017Q1

REPORT INFORMATION
  Report Type: Report from Study
  Country: US (occurrence: US)
  Receive Date: 20170221
  Receipt Date: 20170306
  Transmission Date: 20170428
  Serious: Yes (Hospitalization, Other)
  Sender: FDA-Public Use
  Company Number: US-PFIZER INC-2017043693

PATIENT
  Age: 60 Year
  Sex: Female

DRUGS (1)
  1. IBRANCE [Suspect]
     Active Substance: PALBOCICLIB
     Indication: BREAST CANCER
     Dosage: 125 MG, DAILY
     Route: 048
     Dates: start: 20170103, end: 20170201

REACTIONS (10)
  - Clostridium difficile colitis [Unknown]
  - Vomiting [Unknown]
  - Abdominal pain [Recovering/Resolving]
  - Nausea [Recovering/Resolving]
  - Bone pain [Unknown]
  - Neutropenia [Unknown]
  - Diarrhoea [Recovering/Resolving]
  - Myalgia [Unknown]
  - Fatigue [Not Recovered/Not Resolved]
  - Dehydration [Unknown]
